FAERS Safety Report 7205108-3 (Version None)
Quarter: 2010Q4

REPORT INFORMATION
  Report Type: 
  Country: None (occurrence: None)
  Receive Date: 20101230
  Receipt Date: 20101217
  Transmission Date: 20110411
  Serious: Yes (Other)
  Sender: FDA-Public Use
  Company Number: AU-CELGENEUS-008-21880-10121944

PATIENT
  Sex: Female

DRUGS (4)
  1. REVLIMID [Suspect]
     Indication: MULTIPLE MYELOMA
     Route: 048
     Dates: start: 20100501
  2. CYCLO [Concomitant]
     Indication: MULTIPLE MYELOMA
     Route: 065
     Dates: start: 20100501
  3. DEXAMETHASONE [Concomitant]
     Indication: MULTIPLE MYELOMA
     Route: 065
     Dates: start: 20100501
  4. WHOLE BLOOD [Concomitant]
     Route: 051

REACTIONS (3)
  - BONE MARROW FAILURE [None]
  - MULTIPLE MYELOMA [None]
  - VERTEBRAL COLUMN MASS [None]
